FAERS Safety Report 5090328-7 (Version None)
Quarter: 2006Q3

REPORT INFORMATION
  Report Type: 
  Country: None (occurrence: None)
  Receive Date: 20060828
  Receipt Date: 20060719
  Transmission Date: 20061208
  Serious: No
  Sender: FDA-Public Use
  Company Number: US-GLAXOSMITHKLINE-A0612816A

PATIENT
  Age: 67 Year
  Sex: Male

DRUGS (10)
  1. WELLBUTRIN XL [Suspect]
     Indication: DEPRESSION
     Dosage: 300MG PER DAY
     Route: 048
     Dates: start: 20050101
  2. AMBIEN [Concomitant]
  3. PLETAL [Concomitant]
  4. UROXATRAL [Concomitant]
  5. DIOVAN HCT [Concomitant]
  6. CARDIZEM [Concomitant]
  7. ALLEGRA [Concomitant]
  8. UNKNOWN MEDICATION [Concomitant]
  9. NEXIUM [Concomitant]
  10. LIPITOR [Concomitant]

REACTIONS (5)
  - ARRHYTHMIA [None]
  - COORDINATION ABNORMAL [None]
  - DIZZINESS POSTURAL [None]
  - MUSCULAR WEAKNESS [None]
  - PHARMACEUTICAL PRODUCT COMPLAINT [None]
